FAERS Safety Report 6688453-X (Version None)
Quarter: 2010Q2

REPORT INFORMATION
  Report Type: 
  Country: None (occurrence: None)
  Receive Date: 20100420
  Receipt Date: 20100412
  Transmission Date: 20101027
  Serious: Yes (Other)
  Sender: FDA-Public Use
  Company Number: US-JNJFOC-20100304146

PATIENT
  Age: 62 Year
  Sex: Male
  Weight: 83.92 kg

DRUGS (3)
  1. TYLENOL-500 [Suspect]
     Route: 048
  2. TYLENOL-500 [Suspect]
     Indication: PAIN
     Route: 048
  3. ALLEGRA [Concomitant]
     Indication: MULTIPLE ALLERGIES

REACTIONS (4)
  - DIARRHOEA [None]
  - GASTROINTESTINAL FUNGAL INFECTION [None]
  - NAUSEA [None]
  - PRODUCT QUALITY ISSUE [None]
